FAERS Safety Report 6110339-X (Version None)
Quarter: 2009Q1

REPORT INFORMATION
  Report Type: 
  Country: None (occurrence: None)
  Receive Date: 20090310
  Receipt Date: 20090226
  Transmission Date: 20090719
  Serious: Yes (Life-Threatening, Other)
  Sender: FDA-Public Use
  Company Number: JP-PFIZER INC-2009165240

PATIENT

DRUGS (16)
  1. GABAPEN [Suspect]
     Indication: PAIN
     Dosage: 600 MG, 3X/DAY
     Route: 048
     Dates: start: 20071219
  2. HALCION [Suspect]
     Indication: INSOMNIA
     Dosage: 0.25 MG, 1X/DAY
     Dates: start: 20080611
  3. NEUROTROPIN [Suspect]
     Indication: PAIN
     Dosage: UNK
     Route: 048
     Dates: start: 20071219
  4. BEZATOL - SLOW RELEASE [Suspect]
     Indication: DIABETES MELLITUS
     Dosage: 200 MG, 1X/DAY
     Route: 048
     Dates: start: 20081010
  5. STARSIS [Suspect]
     Indication: DIABETES MELLITUS
     Dosage: 250 MG, 3X/DAY
     Route: 048
     Dates: start: 20080212
  6. KINEDAK [Suspect]
     Indication: DIABETES MELLITUS
     Dosage: 50 MG, 3X/DAY
     Route: 048
     Dates: start: 20080620
  7. ROHYPNOL [Suspect]
     Indication: INSOMNIA
     Dosage: 1 MG, 1X/DAY
     Route: 048
     Dates: start: 20080109
  8. MAG-LAX [Suspect]
     Indication: CONSTIPATION
     Dosage: 250 MG, 3X/DAY
     Route: 048
     Dates: start: 20080709
  9. TRYPTANOL [Suspect]
     Indication: DEPRESSION
     Dosage: 10 MG, 1X/DAY
     Dates: start: 20080725
  10. MORPHINE [Suspect]
     Indication: PAIN
     Dosage: UNK
     Route: 048
     Dates: start: 20080418
  11. PALUX [Suspect]
     Indication: CARDIOVASCULAR INSUFFICIENCY
     Dosage: 10 UG, 1X/DAY
     Route: 042
     Dates: start: 20081107
  12. ANTINEOPLASTIC AGENTS [Concomitant]
  13. DRUG, UNSPECIFIED [Concomitant]
  14. MUCOSTA [Concomitant]
  15. DIAZEPAM [Concomitant]
  16. DRUG, UNSPECIFIED [Concomitant]
     Dosage: UNK
     Route: 048
     Dates: start: 20080523, end: 20090122

REACTIONS (1)
  - HYPOTHERMIA [None]
